FAERS Safety Report 10767079 (Version 3)
Quarter: 2015Q1

REPORT INFORMATION
  Report Type: Report from Study
  Country: NL (occurrence: NL)
  Receive Date: 20150205
  Receipt Date: 20150306
  Transmission Date: 20150721
  Serious: Yes (Life-Threatening, Other)
  Sender: FDA-Public Use
  Company Number: NL-PFIZER INC-2015046878

PATIENT
  Age: 2 Year
  Sex: Female

DRUGS (2)
  1. ATENOLOL. [Suspect]
     Active Substance: ATENOLOL
     Dosage: 1 MG/KG/DAY, ONCE DAILY
  2. ATENOLOL. [Suspect]
     Active Substance: ATENOLOL
     Indication: INFANTILE HAEMANGIOMA
     Dosage: 0.5 MG/KG/DAY, ONCE DAILY

REACTIONS (1)
  - Syncope [Unknown]
